FAERS Safety Report 17817463 (Version 1)
Quarter: 2020Q2

REPORT INFORMATION
  Report Type: Spontaneous
  Country: FR (occurrence: FR)
  Receive Date: 20200522
  Receipt Date: 20200522
  Transmission Date: 20200714
  Serious: Yes (Hospitalization, Other)
  Sender: FDA-Public Use
  Company Number: FR-BIOVITRUM-2020FR2318

PATIENT
  Age: 47 Year
  Sex: Female

DRUGS (2)
  1. KINERET [Suspect]
     Active Substance: ANAKINRA
     Indication: COVID-19 PNEUMONIA
     Route: 058
  2. KINERET [Suspect]
     Active Substance: ANAKINRA
     Route: 058

REACTIONS (2)
  - Off label use [Unknown]
  - Acute respiratory failure [Unknown]
